FAERS Safety Report 5868546-7 (Version None)
Quarter: 2008Q3

REPORT INFORMATION
  Report Type: 
  Country: None (occurrence: None)
  Receive Date: 20080828
  Receipt Date: 20080818
  Transmission Date: 20090109
  Serious: Yes (Death, Hospitalization)
  Sender: FDA-Public Use
  Company Number: 2008AL007877

PATIENT
  Age: 70 Year
  Sex: Male
  Weight: 59.4212 kg

DRUGS (13)
  1. DIGOXIN [Suspect]
     Indication: CARDIAC DISORDER
     Dosage: 0.25 MG,QD,PO, YEARS
     Route: 048
  2. LASIX [Concomitant]
  3. COREG CR [Concomitant]
  4. SPIRONOLACTONE [Concomitant]
  5. AMIODARONE HCL [Concomitant]
  6. PRAVASTATIN [Concomitant]
  7. GLIPIZIDE [Concomitant]
  8. GEMFIBROZIL [Concomitant]
  9. ASPIRIN [Concomitant]
  10. COUMADIN [Concomitant]
  11. LISINOPRIL [Concomitant]
  12. METOPROLOL SUCCINATE [Concomitant]
  13. METFORMIN [Concomitant]

REACTIONS (8)
  - DIZZINESS [None]
  - FEELING ABNORMAL [None]
  - HEART RATE INCREASED [None]
  - HEART RATE IRREGULAR [None]
  - NAUSEA [None]
  - PNEUMONIA [None]
  - RESPIRATORY ARREST [None]
  - SEPSIS [None]
